FAERS Safety Report 6993622-5 (Version None)
Quarter: 2010Q3

REPORT INFORMATION
  Report Type: 
  Country: None (occurrence: None)
  Receive Date: 20100917
  Receipt Date: 20070628
  Transmission Date: 20110219
  Serious: Yes (Other)
  Sender: FDA-Public Use
  Company Number: US-ASTRAZENECA-2006UW23320

PATIENT
  Age: 28 Year
  Sex: Male
  Weight: 94.8 kg

DRUGS (7)
  1. SEROQUEL [Suspect]
     Indication: SCHIZOPHRENIA
     Dosage: 100-800 MG
     Route: 048
     Dates: start: 20021119
  2. SEROQUEL [Suspect]
     Indication: SLEEP DISORDER
     Dosage: 100-800 MG
     Route: 048
     Dates: start: 20021119
  3. SEROQUEL [Suspect]
     Indication: HALLUCINATION, AUDITORY
     Dosage: 100-800 MG
     Route: 048
     Dates: start: 20021119
  4. SEROQUEL [Suspect]
     Route: 048
     Dates: start: 20040101
  5. SEROQUEL [Suspect]
     Route: 048
     Dates: start: 20040101
  6. SEROQUEL [Suspect]
     Route: 048
     Dates: start: 20040101
  7. HALDOL [Suspect]
     Dosage: 100-150 MG
     Route: 030
     Dates: start: 20040220

REACTIONS (4)
  - DIABETES MELLITUS [None]
  - DIABETIC KETOACIDOSIS [None]
  - TYPE 1 DIABETES MELLITUS [None]
  - TYPE 2 DIABETES MELLITUS [None]
